FAERS Safety Report 22044856 (Version 1)
Quarter: 2023Q1

REPORT INFORMATION
  Report Type: Spontaneous
  Country: TR (occurrence: TR)
  Receive Date: 20230228
  Receipt Date: 20230228
  Transmission Date: 20230417
  Serious: Yes (Other)
  Sender: FDA-Public Use
  Company Number: TR-SA-SAC20230227000261

PATIENT
  Sex: Male

DRUGS (3)
  1. TAMSULOSIN HYDROCHLORIDE [Suspect]
     Active Substance: TAMSULOSIN HYDROCHLORIDE
     Indication: Pollakiuria
     Dosage: 0.4 MG, QD
     Route: 048
     Dates: start: 202211
  2. ALCOHOL [Concomitant]
     Active Substance: ALCOHOL
  3. CARDURA [Concomitant]
     Active Substance: DOXAZOSIN MESYLATE
     Dosage: 0.4 MG
     Route: 048
     Dates: start: 2013

REACTIONS (1)
  - Benign prostatic hyperplasia [Not Recovered/Not Resolved]

NARRATIVE: CASE EVENT DATE: 20230101
